FAERS Safety Report 13048145 (Version 1)
Quarter: 2016Q4

REPORT INFORMATION
  Report Type: Spontaneous
  Country: IT (occurrence: IT)
  Receive Date: 20161220
  Receipt Date: 20161220
  Transmission Date: 20170207
  Serious: Yes (Other)
  Sender: FDA-Public Use
  Company Number: IT-MYLANLABS-2016M1055759

PATIENT

DRUGS (13)
  1. CYCLOPHOSPHAMIDE. [Suspect]
     Active Substance: CYCLOPHOSPHAMIDE
     Indication: DIFFUSE LARGE B-CELL LYMPHOMA
     Dosage: 750 MG/M2, QD
     Route: 042
     Dates: start: 20161104
  2. DIFLUCAN [Concomitant]
     Active Substance: FLUCONAZOLE
     Indication: MUCOSAL INFLAMMATION
     Dosage: 200 MG, UNK
     Route: 048
     Dates: start: 20161014
  3. PIOGLITAZONE. [Concomitant]
     Active Substance: PIOGLITAZONE
     Indication: DIABETES MELLITUS
     Dosage: 15 MG, UNK
     Route: 048
  4. RITUXIMAB [Suspect]
     Active Substance: RITUXIMAB
     Indication: DIFFUSE LARGE B-CELL LYMPHOMA
     Dosage: 375 MG/M2, QD
     Route: 042
     Dates: start: 20161104
  5. PREDNISONE. [Suspect]
     Active Substance: PREDNISONE
     Indication: DIFFUSE LARGE B-CELL LYMPHOMA
     Dosage: 100 MG, QD
     Route: 048
     Dates: start: 20161104
  6. HEPARIN [Concomitant]
     Active Substance: HEPARIN SODIUM
     Indication: DEEP VEIN THROMBOSIS
     Dosage: 16000 IU, UNK
     Route: 058
  7. LENALIDOMIDE [Suspect]
     Active Substance: LENALIDOMIDE
     Indication: DIFFUSE LARGE B-CELL LYMPHOMA
     Dosage: UNK UNK, QD
     Route: 048
     Dates: start: 20161104
  8. PANTOPRAZOLE [Concomitant]
     Active Substance: PANTOPRAZOLE SODIUM
     Indication: GASTRITIS PROPHYLAXIS
     Dosage: 20 MG, UNK
     Route: 048
  9. DOXORUBICIN [Suspect]
     Active Substance: DOXORUBICIN
     Indication: DIFFUSE LARGE B-CELL LYMPHOMA
     Dosage: 50 MG/M2, QD
     Route: 042
     Dates: start: 20161104
  10. NIVESTIM [Concomitant]
     Active Substance: FILGRASTIM
     Indication: PROPHYLAXIS
     Dosage: 30 IU, UNK
     Route: 058
     Dates: start: 20161106, end: 20161113
  11. BACTRIM [Concomitant]
     Active Substance: SULFAMETHOXAZOLE\TRIMETHOPRIM
     Indication: INFECTION PROPHYLAXIS
     Dosage: 480 MG, UNK
     Route: 048
     Dates: start: 20160817
  12. LORMETAZEPAM [Concomitant]
     Active Substance: LORMETAZEPAM
     Indication: INSOMNIA
     Dosage: 10 GTT, UNK
     Route: 048
     Dates: start: 20160729
  13. VINCRISTINE [Suspect]
     Active Substance: VINCRISTINE
     Indication: DIFFUSE LARGE B-CELL LYMPHOMA
     Dosage: 1.4 MG/M2, QD
     Route: 042
     Dates: start: 20161104

REACTIONS (3)
  - Anaemia [Recovered/Resolved]
  - Hypotension [Recovered/Resolved]
  - Platelet count decreased [Recovered/Resolved]

NARRATIVE: CASE EVENT DATE: 20161115
